FAERS Safety Report 8250564-5 (Version None)
Quarter: 2012Q2

REPORT INFORMATION
  Report Type: 
  Country: None (occurrence: None)
  Receive Date: 20120402
  Receipt Date: 20120402
  Transmission Date: 20120825
  Serious: No
  Sender: FDA-Public Use
  Company Number: None

PATIENT
  Sex: Female
  Weight: 56.699 kg

DRUGS (1)
  1. RECLAST [Suspect]
     Indication: OSTEOPOROSIS
     Route: 042
     Dates: start: 20111017, end: 20111017

REACTIONS (6)
  - GAIT DISTURBANCE [None]
  - MUSCULAR WEAKNESS [None]
  - IMPAIRED WORK ABILITY [None]
  - INSOMNIA [None]
  - PAIN [None]
  - DYSSTASIA [None]
